FAERS Safety Report 18985351 (Version 1)
Quarter: 2021Q1

REPORT INFORMATION
  Report Type: Report from Study
  Country: US (occurrence: US)
  Receive Date: 20210309
  Receipt Date: 20210309
  Transmission Date: 20210420
  Serious: No
  Sender: FDA-Public Use
  Company Number: NVSC2021US045553

PATIENT
  Sex: Female

DRUGS (1)
  1. PIQRAY [Suspect]
     Active Substance: ALPELISIB
     Indication: PRODUCT USED FOR UNKNOWN INDICATION
     Dosage: UNK
     Route: 048

REACTIONS (7)
  - Blood glucose increased [Unknown]
  - Lacrimation increased [Unknown]
  - Rash [Unknown]
  - Rash macular [Unknown]
  - Feeling abnormal [Unknown]
  - Eye discharge [Unknown]
  - Tongue erythema [Unknown]
